FAERS Safety Report 18320100 (Version 1)
Quarter: 2020Q3

REPORT INFORMATION
  Report Type: Spontaneous
  Country: US (occurrence: US)
  Receive Date: 20200928
  Receipt Date: 20200928
  Transmission Date: 20201103
  Serious: No
  Sender: FDA-Public Use
  Company Number: US-009507513-2009USA008572

PATIENT
  Age: 33 Year
  Sex: Female

DRUGS (4)
  1. MENOPUR [Concomitant]
     Active Substance: FOLLITROPIN\LUTEINIZING HORMONE
  2. OVIDREL [Concomitant]
     Active Substance: CHORIOGONADOTROPIN ALFA
  3. FOLLISTIM AQ [Suspect]
     Active Substance: FOLLITROPIN
  4. FOLLISTIM AQ [Suspect]
     Active Substance: FOLLITROPIN
     Indication: INFERTILITY FEMALE
     Dosage: STRENGTH: 300 IU/0.36ML; DOSE: 300 UNITS; FREQUENCY: AS DIRECTED, ROUTE: SQ IVF CYCLE 5
     Route: 058
     Dates: start: 20200618

REACTIONS (1)
  - Rash erythematous [Unknown]

NARRATIVE: CASE EVENT DATE: 20200916
